FAERS Safety Report 9030282 (Version 3)
Quarter: 2013Q1

REPORT INFORMATION
  Report Type: Report from Study
  Country: CA (occurrence: CA)
  Receive Date: 20130122
  Receipt Date: 20130128
  Transmission Date: 20140127
  Serious: Yes (Hospitalization, Other)
  Sender: FDA-Public Use
  Company Number: CA-ROCHE-1176934

PATIENT
  Sex: Female
  Weight: 80 kg

DRUGS (7)
  1. AVASTIN [Suspect]
     Indication: GLIOBLASTOMA
     Route: 042
     Dates: start: 20121219
  2. CELEXA [Concomitant]
  3. DILANTIN [Concomitant]
  4. ZYPREXA [Concomitant]
  5. DECADRON [Concomitant]
  6. TYLENOL [Concomitant]
     Indication: PREMEDICATION
     Route: 048
     Dates: start: 20121219, end: 20130104
  7. BENADRYL [Concomitant]
     Indication: PREMEDICATION
     Route: 048
     Dates: start: 20121219, end: 20130104

REACTIONS (5)
  - Fall [Recovered/Resolved]
  - Hypertension [Not Recovered/Not Resolved]
  - Mobility decreased [Not Recovered/Not Resolved]
  - Dizziness [Unknown]
  - Depression [Not Recovered/Not Resolved]
